FAERS Safety Report 10161977 (Version 1)
Quarter: 2014Q2

REPORT INFORMATION
  Report Type: Spontaneous
  Country: US (occurrence: None)
  Receive Date: 20140508
  Receipt Date: 20140508
  Transmission Date: 20141212
  Serious: No
  Sender: FDA-Public Use
  Company Number: None

PATIENT
  Sex: Male

DRUGS (1)
  1. LAMICTAL XR [Suspect]
     Indication: EPILEPSY
     Dosage: TAKE 3 (TOTAL 300 MG) AM PO
     Route: 048
     Dates: start: 201004

REACTIONS (3)
  - Product substitution issue [None]
  - Convulsion [None]
  - Condition aggravated [None]
